FAERS Safety Report 13258945 (Version 3)
Quarter: 2017Q2

REPORT INFORMATION
  Report Type: Report from Study
  Country: US (occurrence: US)
  Receive Date: 20170222
  Receipt Date: 20170412
  Transmission Date: 20170830
  Serious: Yes (Hospitalization)
  Sender: FDA-Public Use
  Company Number: US-JNJFOC-20170118963

PATIENT
  Age: 73 Year
  Sex: Male

DRUGS (14)
  1. CLARITIN-D NOS [Concomitant]
     Active Substance: LORATADINE\PSEUDOEPHEDRINE SULFATE
  2. LEVOTHYROXINE. [Concomitant]
     Active Substance: LEVOTHYROXINE
  3. JANUVIA [Concomitant]
     Active Substance: SITAGLIPTIN PHOSPHATE
  4. IMBRUVICA [Suspect]
     Active Substance: IBRUTINIB
     Indication: CHRONIC LYMPHOCYTIC LEUKAEMIA
     Route: 048
     Dates: start: 20151124
  5. ACYCLOVIR. [Concomitant]
     Active Substance: ACYCLOVIR
  6. NAPROSYN [Concomitant]
     Active Substance: NAPROXEN
  7. IMBRUVICA [Suspect]
     Active Substance: IBRUTINIB
     Indication: CHRONIC LYMPHOCYTIC LEUKAEMIA
     Route: 048
     Dates: start: 20151007
  8. VYTORIN [Concomitant]
     Active Substance: EZETIMIBE\SIMVASTATIN
  9. NORCO [Concomitant]
     Active Substance: ACETAMINOPHEN\HYDROCODONE BITARTRATE
     Indication: PAIN
     Dosage: (1 TO 2 EVERY 4 HOURS)
  10. TRANXENE T-TAB [Concomitant]
     Active Substance: CLORAZEPATE DIPOTASSIUM
     Dosage: EVERY 8 HOURS
  11. ZETIA [Concomitant]
     Active Substance: EZETIMIBE
  12. ASPIRIN. [Concomitant]
     Active Substance: ASPIRIN
  13. CYPROHEPTADINE. [Concomitant]
     Active Substance: CYPROHEPTADINE
  14. NEURONTIN [Concomitant]
     Active Substance: GABAPENTIN
     Dosage: 600 UNK

REACTIONS (17)
  - Asthenia [Recovered/Resolved]
  - Hypovolaemia [Recovered/Resolved]
  - Viral infection [Unknown]
  - Dehydration [Recovered/Resolved]
  - Headache [Unknown]
  - Drug dose omission [Not Recovered/Not Resolved]
  - Diarrhoea [Recovering/Resolving]
  - Liver function test increased [Recovered/Resolved]
  - Acute kidney injury [Recovered/Resolved]
  - Muscle injury [Recovered/Resolved]
  - Nausea [Recovering/Resolving]
  - Rhabdomyolysis [Recovered/Resolved]
  - Urinary tract infection [Recovered/Resolved]
  - Vomiting [Recovering/Resolving]
  - Abdominal pain [Recovered/Resolved]
  - Fall [Recovered/Resolved]
  - Eyelid contusion [Recovered/Resolved]

NARRATIVE: CASE EVENT DATE: 2017
